FAERS Safety Report 15101786 (Version 5)
Quarter: 2019Q1

REPORT INFORMATION
  Report Type: Report from Study
  Country: DE (occurrence: DE)
  Receive Date: 20180703
  Receipt Date: 20190103
  Transmission Date: 20190417
  Serious: Yes (Other)
  Sender: FDA-Public Use
  Company Number: DE-PFIZER INC-2018259447

PATIENT
  Age: 8 Year
  Sex: Male

DRUGS (4)
  1. IDARUBICIN HCL [Suspect]
     Active Substance: IDARUBICIN HYDROCHLORIDE
     Indication: EWING^S SARCOMA
     Dosage: 5.5 MG/M2, UNK
     Route: 048
  2. VORINOSTAT [Suspect]
     Active Substance: VORINOSTAT
     Indication: EWING^S SARCOMA
     Dosage: 100 MG, UNK
     Route: 048
  3. PACLITAXEL. [Suspect]
     Active Substance: PACLITAXEL
     Indication: EWING^S SARCOMA
     Dosage: 175 MG/M2, UNK
     Route: 042
  4. PONATINIB [Suspect]
     Active Substance: PONATINIB
     Indication: EWING^S SARCOMA
     Dosage: 15 MG, UNK
     Route: 048

REACTIONS (2)
  - Neutropenia [Unknown]
  - Lymphopenia [Unknown]
